FAERS Safety Report 18563448 (Version 1)
Quarter: 2020Q4

REPORT INFORMATION
  Report Type: Spontaneous
  Country: FR (occurrence: FR)
  Receive Date: 20201201
  Receipt Date: 20201201
  Transmission Date: 20210114
  Serious: Yes (Death, Congenital Anomaly)
  Sender: FDA-Public Use
  Company Number: FR-TEVA-2020-FR-1853431

PATIENT
  Sex: Male

DRUGS (1)
  1. ISOTRETINOINE [Suspect]
     Active Substance: ISOTRETINOIN
     Indication: ACNE
     Route: 064
     Dates: start: 20200212, end: 20200222

REACTIONS (3)
  - Anotia [Fatal]
  - Cerebellar hypoplasia [Fatal]
  - Heart disease congenital [Fatal]

NARRATIVE: CASE EVENT DATE: 20200712
